FAERS Safety Report 8935629 (Version 5)
Quarter: 2014Q1

REPORT INFORMATION
  Report Type: Report from Study
  Country: US (occurrence: US)
  Receive Date: 20121130
  Receipt Date: 20140211
  Transmission Date: 20141002
  Serious: Yes (Other)
  Sender: FDA-Public Use
  Company Number: PHEH2012US023326

PATIENT
  Sex: Female

DRUGS (2)
  1. MYFORTIC [Suspect]
     Indication: LIVER TRANSPLANT
     Dosage: 360 MG, BID
     Route: 048
     Dates: start: 2005
  2. MYFORTIC [Suspect]
     Dosage: 2 DF, BID
     Route: 048
     Dates: start: 20071008

REACTIONS (3)
  - Chronic obstructive pulmonary disease [Unknown]
  - Renal disorder [Unknown]
  - Renal failure [Unknown]
